FAERS Safety Report 20094058 (Version 5)
Quarter: 2022Q2

REPORT INFORMATION
  Report Type: Report from Study
  Country: CA (occurrence: CA)
  Receive Date: 20211121
  Receipt Date: 20220629
  Transmission Date: 20220721
  Serious: Yes (Death, Hospitalization, Other)
  Sender: FDA-Public Use
  Company Number: CA-ABBVIE-21K-028-4168067-00

PATIENT
  Sex: Female

DRUGS (1)
  1. RINVOQ [Suspect]
     Active Substance: UPADACITINIB
     Indication: Rheumatoid arthritis
     Route: 048
     Dates: start: 20201104

REACTIONS (4)
  - Tongue neoplasm malignant stage unspecified [Fatal]
  - Pneumothorax [Not Recovered/Not Resolved]
  - General physical health deterioration [Unknown]
  - Mouth ulceration [Unknown]
